FAERS Safety Report 25252184 (Version 1)
Quarter: 2025Q2

REPORT INFORMATION
  Report Type: Report from Study
  Country: IT (occurrence: IT)
  Receive Date: 20250429
  Receipt Date: 20250429
  Transmission Date: 20250717
  Serious: Yes (Other)
  Sender: VERITY PHARMACEUTICALS INC.
  Company Number: IT-VER-202500004

PATIENT
  Sex: Male

DRUGS (1)
  1. TRIPTORELIN [Suspect]
     Active Substance: TRIPTORELIN
     Indication: Prostate cancer
     Route: 065

REACTIONS (14)
  - Diarrhoea [Unknown]
  - Gastrointestinal toxicity [Unknown]
  - Urinary bladder toxicity [Unknown]
  - Haematuria [Unknown]
  - Hot flush [Unknown]
  - Nocturia [Unknown]
  - Pollakiuria [Unknown]
  - Rectal haemorrhage [Unknown]
  - Rectal tenesmus [Unknown]
  - Sexual dysfunction [Unknown]
  - Strangury [Unknown]
  - Anal incontinence [Unknown]
  - Urinary incontinence [Unknown]
  - Micturition urgency [Unknown]
